FAERS Safety Report 5259810-3 (Version None)
Quarter: 2007Q1

REPORT INFORMATION
  Report Type: 
  Country: None (occurrence: None)
  Receive Date: 20061117
  Receipt Date: 20060920
  Transmission Date: 20070707
  Serious: Yes (Hospitalization)
  Sender: FDA-Public Use
  Company Number: US-JNJFOC-20060602963

PATIENT
  Age: 69 Year
  Sex: Male
  Weight: 92.5338 kg

DRUGS (8)
  1. LEVAQUIN [Suspect]
     Indication: THERAPEUTIC PROCEDURE
     Dosage: SEE IMAGE
     Route: 048
     Dates: start: 20060530, end: 20060531
  2. LEVAQUIN [Suspect]
     Indication: URINARY TRACT INFECTION
     Dosage: SEE IMAGE
     Route: 048
     Dates: start: 20060530, end: 20060531
  3. LEVAQUIN [Suspect]
     Indication: THERAPEUTIC PROCEDURE
     Dosage: SEE IMAGE
     Route: 048
     Dates: start: 20060610, end: 20060612
  4. LEVAQUIN [Suspect]
     Indication: URINARY TRACT INFECTION
     Dosage: SEE IMAGE
     Route: 048
     Dates: start: 20060610, end: 20060612
  5. DIOVAN [Concomitant]
  6. LIPITOR [Concomitant]
  7. PAXIL [Concomitant]
  8. ASPIRIN [Concomitant]

REACTIONS (2)
  - RED BLOOD CELL SEDIMENTATION RATE INCREASED [None]
  - URINARY TRACT INFECTION [None]
